FAERS Safety Report 6803726-5 (Version None)
Quarter: 2010Q2

REPORT INFORMATION
  Report Type: 
  Country: None (occurrence: None)
  Receive Date: 20100628
  Receipt Date: 20100615
  Transmission Date: 20101027
  Serious: Yes (Other)
  Sender: FDA-Public Use
  Company Number: KR-ELI_LILLY_AND_COMPANY-KR201006005515

PATIENT
  Sex: Male
  Weight: 50 kg

DRUGS (1)
  1. STRATTERA [Suspect]
     Indication: TIC
     Dosage: UNK, UNK
     Route: 048
     Dates: start: 20100301

REACTIONS (3)
  - INTRAOCULAR PRESSURE INCREASED [None]
  - OFF LABEL USE [None]
  - VISUAL ACUITY REDUCED [None]
